FAERS Safety Report 4995789-7 (Version None)
Quarter: 2006Q1

REPORT INFORMATION
  Report Type: 
  Country: None (occurrence: None)
  Receive Date: 20060315
  Receipt Date: 20051214
  Transmission Date: 20060701
  Serious: Yes (Other)
  Sender: FDA-Public Use
  Company Number: 428883

PATIENT
  Age: 53 Year
  Sex: Female
  Weight: 71.7 kg

DRUGS (2)
  1. BONIVA [Suspect]
     Indication: OSTEOPOROSIS
     Dosage: 150 MG   1 PER MONTH   ORAL
     Route: 048
     Dates: start: 20051211, end: 20051211
  2. OYSTER SHELL CALCIUM CONTINUING (CALCIUM CARBONATE) [Concomitant]

REACTIONS (5)
  - ABDOMINAL PAIN [None]
  - BACK PAIN [None]
  - DIARRHOEA [None]
  - DYSPHAGIA [None]
  - HAEMATOCHEZIA [None]
